FAERS Safety Report 14625777 (Version 2)
Quarter: 2018Q1

REPORT INFORMATION
  Report Type: Report from Study
  Country: IL (occurrence: IL)
  Receive Date: 20180312
  Receipt Date: 20180321
  Transmission Date: 20180509
  Serious: Yes (Hospitalization, Other)
  Sender: FDA-Public Use
  Company Number: IL-AMGEN-ISRSL2018031902

PATIENT
  Sex: Male

DRUGS (1)
  1. NPLATE [Suspect]
     Active Substance: ROMIPLOSTIM
     Indication: IMMUNE THROMBOCYTOPENIC PURPURA
     Dosage: 150 MUG, QWK
     Route: 065
     Dates: start: 20140306

REACTIONS (5)
  - Pneumonia [Unknown]
  - Wound infection [Unknown]
  - Localised infection [Unknown]
  - General physical health deterioration [Unknown]
  - Dermatitis atopic [Unknown]
